FAERS Safety Report 7437392-5 (Version None)
Quarter: 2011Q2

REPORT INFORMATION
  Report Type: 
  Country: None (occurrence: None)
  Receive Date: 20110426
  Receipt Date: 20110413
  Transmission Date: 20111010
  Serious: Yes (Other)
  Sender: FDA-Public Use
  Company Number: US-SANOFI-AVENTIS-2011SA023586

PATIENT
  Age: 57 Year
  Sex: Female

DRUGS (14)
  1. PLAVIX [Suspect]
     Route: 048
     Dates: start: 20051001
  2. HYDROCHLOROTHIAZIDE [Concomitant]
  3. FLONASE [Concomitant]
     Dosage: 50MCG 1-2 SPRAYS PER NOSTRIL DAILY
  4. AMBIEN [Concomitant]
  5. VALTREX [Concomitant]
     Dosage: 1GM 2 TAB TWICE A DAY
  6. XANAX [Concomitant]
     Dosage: 25MG 1/2 TAB PRN
  7. ASPIRIN [Concomitant]
  8. IRON [Concomitant]
  9. TIAZAC [Concomitant]
  10. MULTI-VITAMINS [Concomitant]
  11. LIPITOR [Concomitant]
  12. CALCIUM CARBONATE/VITAMIN D NOS [Concomitant]
     Dosage: 600/400 DAILY
  13. PROTONIX [Concomitant]
  14. VICODIN [Concomitant]
     Dosage: 5/500MG 1 TAB UP TO TWICE A DAY PRN

REACTIONS (7)
  - HAEMATOMA [None]
  - GASTROOESOPHAGEAL REFLUX DISEASE [None]
  - PRODUCT ODOUR ABNORMAL [None]
  - COELIAC DISEASE [None]
  - MALAISE [None]
  - CORONARY ARTERY OCCLUSION [None]
  - DYSPNOEA [None]
